FAERS Safety Report 7277240-X (Version None)
Quarter: 2011Q1

REPORT INFORMATION
  Report Type: 
  Country: None (occurrence: None)
  Receive Date: 20110202
  Receipt Date: 20110202
  Transmission Date: 20110831
  Serious: Yes (Hospitalization)
  Sender: FDA-Public Use
  Company Number: None

PATIENT
  Age: 89 Year
  Sex: Female
  Weight: 61 kg

DRUGS (13)
  1. AMANTADINE HCL [Concomitant]
  2. METOPOLOL [Concomitant]
  3. ERGOCALCIFEROL [Concomitant]
  4. FAMOTIDINE [Concomitant]
  5. SENNA [Concomitant]
  6. LISINOPRIL [Suspect]
     Indication: HYPERTENSION
     Dosage: 40 MG DAILY (PRIOR TO ADMISSION)
  7. ASPIRIN [Concomitant]
  8. QUETIAPINE [Concomitant]
  9. CARBIDOPA/ENTACAPONE/LEVODOPA [Concomitant]
  10. CARBIDOPA AND LEVODOPA [Concomitant]
  11. POLYETHYLENE GLYCOL [Concomitant]
  12. CALCIUM + VITAMIN D [Concomitant]
  13. SIMVASTATIN [Concomitant]

REACTIONS (4)
  - SWOLLEN TONGUE [None]
  - ANGIOEDEMA [None]
  - FALL [None]
  - LIP SWELLING [None]
